FAERS Safety Report 10341576 (Version 1)
Quarter: 2014Q3

REPORT INFORMATION
  Report Type: Spontaneous
  Country: US (occurrence: None)
  Receive Date: 20140724
  Receipt Date: 20140724
  Transmission Date: 20150326
  Serious: Yes (Hospitalization)
  Sender: FDA-Public Use
  Company Number: None

PATIENT
  Age: 67 Year
  Sex: Male
  Weight: 107 kg

DRUGS (2)
  1. 5-FLUOROURACIL (5-FU) [Suspect]
     Active Substance: FLUOROURACIL
  2. ELOXATIN [Suspect]
     Active Substance: OXALIPLATIN

REACTIONS (2)
  - Gastritis [None]
  - Abdominal pain [None]

NARRATIVE: CASE EVENT DATE: 20140721
